FAERS Safety Report 9774770 (Version 1)
Quarter: 2013Q4

REPORT INFORMATION
  Report Type: Spontaneous
  Country: US (occurrence: US)
  Receive Date: 20131220
  Receipt Date: 20131220
  Transmission Date: 20140711
  Serious: Yes (Other)
  Sender: FDA-Public Use
  Company Number: US-ENDO PHARMACEUTICALS INC.-OPIR20130025

PATIENT
  Sex: Female
  Weight: 81.72 kg

DRUGS (2)
  1. OPANA 10 MG [Suspect]
     Indication: PAIN
     Route: 048
  2. OPANA ER 20MG [Suspect]
     Indication: PAIN
     Dosage: 20MG
     Route: 048

REACTIONS (3)
  - Terminal state [Not Recovered/Not Resolved]
  - Incoherent [Not Recovered/Not Resolved]
  - Drug ineffective [Not Recovered/Not Resolved]
